FAERS Safety Report 5071555-1 (Version None)
Quarter: 2006Q3

REPORT INFORMATION
  Report Type: 
  Country: None (occurrence: None)
  Receive Date: 20060804
  Receipt Date: 20060530
  Transmission Date: 20061208
  Serious: Yes (Other)
  Sender: FDA-Public Use
  Company Number: US-ROCHE-450220

PATIENT
  Age: 54 Year
  Sex: Female

DRUGS (8)
  1. PEGASYS [Suspect]
     Dosage: ROUTE REPORTED AS INJECTABLE.
     Route: 050
     Dates: start: 20060428, end: 20060622
  2. COPEGUS [Suspect]
     Dosage: 3 TABLETS IN THE MORNING AND 2 TABLETS IN THE EVENING, ON THURSDAYS.
     Route: 048
     Dates: start: 20060428, end: 20060622
  3. ALTACE [Concomitant]
     Indication: HYPERTENSION
  4. WELLBUTRIN XL [Concomitant]
     Indication: DEPRESSION
  5. ASPIRIN [Concomitant]
  6. VITAMINE D [Concomitant]
     Dosage: WITH CALCIUM.
  7. FISH OIL [Concomitant]
     Dosage: REPORTED AS TWO DAILY.
  8. CALCIUM GLUCONATE [Concomitant]

REACTIONS (1)
  - MENINGITIS VIRAL [None]
